FAERS Safety Report 7335053-4 (Version None)
Quarter: 2011Q1

REPORT INFORMATION
  Report Type: 
  Country: None (occurrence: None)
  Receive Date: 20110307
  Receipt Date: 20110303
  Transmission Date: 20110831
  Serious: Yes (Other)
  Sender: FDA-Public Use
  Company Number: IT-ROCHE-763480

PATIENT
  Sex: Female

DRUGS (2)
  1. HERCEPTIN [Suspect]
     Dosage: FREQUENCY: CYCLIC
     Route: 042
  2. HERCEPTIN [Suspect]
     Indication: BREAST CANCER
     Dosage: FREQUENCY: CYCLIC
     Route: 042
     Dates: start: 20100831

REACTIONS (5)
  - TREMOR [None]
  - HOT FLUSH [None]
  - PRURITUS [None]
  - RASH PAPULAR [None]
  - HYPERHIDROSIS [None]
